FAERS Safety Report 4918016-5 (Version None)
Quarter: 2006Q1

REPORT INFORMATION
  Report Type: 
  Country: None (occurrence: None)
  Receive Date: 20060221
  Receipt Date: 20050818
  Transmission Date: 20060701
  Serious: Yes (Hospitalization)
  Sender: FDA-Public Use
  Company Number: US-MERCK-0508USA03303

PATIENT
  Age: 77 Year
  Sex: Male
  Weight: 70 kg

DRUGS (2)
  1. VIOXX [Suspect]
     Indication: SPINAL COLUMN STENOSIS
     Route: 048
     Dates: start: 19990101, end: 20040101
  2. LISINOPRIL [Concomitant]
     Route: 065

REACTIONS (11)
  - ABDOMINAL ADHESIONS [None]
  - ACUTE MYOCARDIAL INFARCTION [None]
  - ANAEMIA [None]
  - ANXIETY [None]
  - CEREBROVASCULAR ACCIDENT [None]
  - COLECTOMY [None]
  - CORONARY ARTERY DISEASE [None]
  - DEPRESSION [None]
  - HYPOTENSION [None]
  - LARGE INTESTINE PERFORATION [None]
  - SMALL INTESTINAL OBSTRUCTION [None]
